FAERS Safety Report 7121760-5 (Version None)
Quarter: 2010Q4

REPORT INFORMATION
  Report Type: 
  Country: None (occurrence: None)
  Receive Date: 20101124
  Receipt Date: 20101119
  Transmission Date: 20110411
  Serious: Yes (Death)
  Sender: FDA-Public Use
  Company Number: JP-JNJFOC-20101003951

PATIENT
  Age: 82 Year
  Sex: Female

DRUGS (10)
  1. FINIBAX [Suspect]
     Indication: PNEUMONIA ASPIRATION
     Route: 041
  2. FINIBAX [Suspect]
     Route: 041
  3. FINIBAX [Suspect]
     Route: 041
  4. SOL-MELCORT [Concomitant]
     Route: 065
  5. FAMOSTAGINE [Concomitant]
     Route: 042
  6. RYTHMODAN P [Concomitant]
     Route: 042
  7. VEEN-D [Concomitant]
     Route: 065
  8. TPN ELECTROLYTES IN PLASTIC CONTAINER [Concomitant]
     Route: 065
  9. PANTHENOL [Concomitant]
     Route: 065
  10. PRIMPERAN [Concomitant]
     Route: 065

REACTIONS (2)
  - ACUTE HEPATIC FAILURE [None]
  - ACUTE RESPIRATORY DISTRESS SYNDROME [None]
